FAERS Safety Report 9525849 (Version 1)
Quarter: 2013Q3

REPORT INFORMATION
  Report Type: Spontaneous
  Country: US (occurrence: US)
  Receive Date: 20130916
  Receipt Date: 20130916
  Transmission Date: 20140515
  Serious: No
  Sender: FDA-Public Use
  Company Number: US-BIOGENIDEC-2013BI086957

PATIENT
  Sex: Female

DRUGS (9)
  1. AVONEX [Suspect]
     Indication: MULTIPLE SCLEROSIS
     Route: 030
     Dates: start: 20130226
  2. AMANTADINE HCL [Concomitant]
  3. BACLOFEN [Concomitant]
  4. BUSIPIRONE HCL [Concomitant]
  5. OXUBUTYNIN CHLORIDE [Concomitant]
  6. TYLENOL [Concomitant]
  7. WARFARIN SODIUM [Concomitant]
  8. ZIPRASIDONE HCL [Concomitant]
  9. ZOLINZA [Concomitant]

REACTIONS (2)
  - Sensation of heaviness [Unknown]
  - Fatigue [Unknown]
